FAERS Safety Report 23218593 (Version 1)
Quarter: 2023Q4

REPORT INFORMATION
  Report Type: Spontaneous
  Country: ZA (occurrence: ZA)
  Receive Date: 20231122
  Receipt Date: 20231122
  Transmission Date: 20240110
  Serious: Yes (Hospitalization, Other)
  Sender: FDA-Public Use
  Company Number: ZA-PFIZER INC-202300381348

PATIENT
  Age: 59 Year
  Sex: Male
  Weight: 79 kg

DRUGS (5)
  1. METHOTREXATE SODIUM [Suspect]
     Active Substance: METHOTREXATE SODIUM
     Dosage: 20 MG
     Dates: start: 200804
  2. SULFASALAZINE [Suspect]
     Active Substance: SULFASALAZINE
     Dosage: 1 G, 2X/DAY
     Dates: start: 200804
  3. ARCOXIA [Concomitant]
     Active Substance: ETORICOXIB
     Dosage: UNK
  4. ACLASTA [Concomitant]
     Active Substance: ZOLEDRONIC ACID
     Dosage: 7.5 MG
  5. ENBREL [Concomitant]
     Active Substance: ETANERCEPT
     Dosage: 50 MG, WEEKLY
     Dates: start: 20091015

REACTIONS (4)
  - Spinal fracture [Recovered/Resolved]
  - Fall [Unknown]
  - Herpes zoster [Unknown]
  - Therapeutic response decreased [Unknown]

NARRATIVE: CASE EVENT DATE: 20230601
